FAERS Safety Report 16551666 (Version 1)
Quarter: 2019Q3

REPORT INFORMATION
  Report Type: Report from Study
  Country: NL (occurrence: NL)
  Receive Date: 20190710
  Receipt Date: 20190710
  Transmission Date: 20191004
  Serious: Yes (Other)
  Sender: FDA-Public Use
  Company Number: NL-ROCHE-2348722

PATIENT

DRUGS (3)
  1. ALTEPLASE. [Suspect]
     Active Substance: ALTEPLASE
     Indication: MYOCARDIAL INFARCTION
     Route: 040
  2. ASPIRIN [ACETYLSALICYLIC ACID] [Concomitant]
     Active Substance: ASPIRIN
     Dosage: 150 TO 325 MG/D
     Route: 065
  3. HEPARIN [Concomitant]
     Active Substance: HEPARIN SODIUM
     Route: 040

REACTIONS (8)
  - Haemorrhage [Unknown]
  - Ventricular arrhythmia [Unknown]
  - Bradycardia [Unknown]
  - Angina pectoris [Unknown]
  - Haemorrhage intracranial [Unknown]
  - Embolic stroke [Unknown]
  - Haemorrhagic stroke [Unknown]
  - Cardiac failure [Unknown]
